FAERS Safety Report 19154417 (Version 2)
Quarter: 2021Q2

REPORT INFORMATION
  Report Type: Report from Study
  Country: US (occurrence: US)
  Receive Date: 20210419
  Receipt Date: 20210609
  Transmission Date: 20210717
  Serious: Yes (Hospitalization, Other)
  Sender: FDA-Public Use
  Company Number: US-OTSUKA-2021_011204AA

PATIENT
  Age: 80 Year
  Sex: Female

DRUGS (1)
  1. ASTX727 [Suspect]
     Active Substance: CEDAZURIDINE\DECITABINE
     Indication: BREAST NEOPLASM
     Dosage: 135MG (35 MG DECITABINE AND 100 MG CEDAZURIDINE), QD (ON 1?5 DAYS) EVERY 28?DAY CYCLE
     Route: 048
     Dates: start: 20210319

REACTIONS (11)
  - Vomiting [Unknown]
  - Product use in unapproved indication [Unknown]
  - Platelet count decreased [Unknown]
  - Taste disorder [Unknown]
  - Asthenia [Unknown]
  - Wrong technique in product usage process [Unknown]
  - Parosmia [Unknown]
  - Rash [Recovered/Resolved]
  - Feeding disorder [Unknown]
  - Product packaging difficult to open [Unknown]
  - Nausea [Unknown]

NARRATIVE: CASE EVENT DATE: 20210330
